FAERS Safety Report 15967983 (Version 2)
Quarter: 2019Q2

REPORT INFORMATION
  Report Type: Spontaneous
  Country: US (occurrence: US)
  Receive Date: 20190215
  Receipt Date: 20190408
  Transmission Date: 20190711
  Serious: Yes (Other)
  Sender: FDA-Public Use
  Company Number: US-OTSUKA-2019_003997

PATIENT

DRUGS (1)
  1. ABILIFY MAINTENA [Suspect]
     Active Substance: ARIPIPRAZOLE
     Indication: SCHIZOPHRENIA
     Dosage: 400 MG, QM (400 MG ONCE EVERY 4 WEEK)
     Route: 065

REACTIONS (3)
  - Substance abuse [Unknown]
  - Unevaluable event [Unknown]
  - Imprisonment [Unknown]

NARRATIVE: CASE EVENT DATE: 201902
